FAERS Safety Report 6850079-2 (Version None)
Quarter: 2010Q3

REPORT INFORMATION
  Report Type: 
  Country: None (occurrence: None)
  Receive Date: 20100716
  Receipt Date: 20071215
  Transmission Date: 20110219
  Serious: No
  Sender: FDA-Public Use
  Company Number: US-PFIZER INC-2007085695

PATIENT
  Age: 43 Year
  Sex: Male
  Weight: 113.4 kg

DRUGS (7)
  1. CHANTIX [Suspect]
     Indication: SMOKING CESSATION THERAPY
     Dates: start: 20071002
  2. WELLBUTRIN [Concomitant]
     Indication: DEPRESSION
  3. RISPERIDONE [Concomitant]
     Dosage: 2 EVERY 1 MONTHS
  4. PLAVIX [Concomitant]
  5. PREVACID [Concomitant]
  6. DEPAKOTE [Concomitant]
  7. RISPERDAL [Concomitant]
     Route: 048

REACTIONS (2)
  - CAFFEINE CONSUMPTION [None]
  - SOMNOLENCE [None]
